FAERS Safety Report 9507044 (Version 1)
Quarter: 2013Q3

REPORT INFORMATION
  Report Type: Spontaneous
  Country: CH (occurrence: None)
  Receive Date: 20130904
  Receipt Date: 20130904
  Transmission Date: 20140515
  Serious: Yes (Hospitalization)
  Sender: FDA-Public Use
  Company Number: CH-LHC-2013038

PATIENT
  Age: 43 Year
  Sex: Female

DRUGS (2)
  1. CARBON DIOXIDE [Suspect]
     Indication: SKIN INFECTION
     Dosage: UNKNOWN
  2. CARBON DIOXIDE [Suspect]
     Indication: OFF LABEL USE
     Dosage: UNKNOWN

REACTIONS (3)
  - Dysaesthesia [None]
  - Muscle contracture [None]
  - Subcutaneous emphysema [None]
